FAERS Safety Report 21920398 (Version 2)
Quarter: 2023Q1

REPORT INFORMATION
  Report Type: Spontaneous
  Country: JP (occurrence: JP)
  Receive Date: 20230127
  Receipt Date: 20230221
  Transmission Date: 20230418
  Serious: Yes (Hospitalization, Other)
  Sender: FDA-Public Use
  Company Number: JP-OTSUKA-2023_001975

PATIENT
  Age: 9 Decade
  Sex: Female

DRUGS (7)
  1. ABILIFY [Suspect]
     Active Substance: ARIPIPRAZOLE
     Indication: Schizophrenia
     Dosage: UNK
     Route: 030
  2. ABILIFY [Suspect]
     Active Substance: ARIPIPRAZOLE
     Dosage: 400
     Route: 030
  3. ABILIFY [Suspect]
     Active Substance: ARIPIPRAZOLE
     Indication: Schizophrenia
     Dosage: 9 MG/DAY
     Route: 048
  4. ABILIFY [Suspect]
     Active Substance: ARIPIPRAZOLE
     Dosage: 12
     Route: 048
  5. REXULTI [Suspect]
     Active Substance: BREXPIPRAZOLE
     Indication: Schizophrenia
     Dosage: 2 MG/DAY
     Route: 048
  6. QUETIAPINE FUMARATE [Concomitant]
     Active Substance: QUETIAPINE FUMARATE
     Indication: Product used for unknown indication
     Dosage: 100
     Route: 048
  7. QUETIAPINE FUMARATE [Concomitant]
     Active Substance: QUETIAPINE FUMARATE
     Dosage: 150
     Route: 048

REACTIONS (8)
  - Femoral neck fracture [Unknown]
  - Mental disorder [Unknown]
  - Urinary tract infection [Unknown]
  - Hallucination [Recovered/Resolved]
  - Anger [Recovered/Resolved]
  - Delusion [Recovered/Resolved]
  - Insomnia [Unknown]
  - Refusal of treatment by patient [Unknown]
